FAERS Safety Report 4404663-6 (Version None)
Quarter: 2004Q3

REPORT INFORMATION
  Report Type: 
  Country: None (occurrence: None)
  Receive Date: 20040722
  Receipt Date: 20040302
  Transmission Date: 20050211
  Serious: Yes (Hospitalization, Other)
  Sender: FDA-Public Use
  Company Number: US-AMGEN-US067580

PATIENT
  Sex: Male

DRUGS (9)
  1. EPOGEN [Suspect]
     Indication: DIALYSIS
     Route: 058
     Dates: start: 20021120, end: 20040213
  2. QUINIDINE SULFATE [Concomitant]
     Route: 048
     Dates: start: 20021122, end: 20040217
  3. CLONIDINE HCL [Concomitant]
     Dates: start: 20021122, end: 20031030
  4. LABETALOL HCL [Concomitant]
     Dates: start: 20021122
  5. TIAZAC [Concomitant]
  6. EFFEXOR [Concomitant]
  7. FLUOXETINE [Concomitant]
  8. DILANTIN [Concomitant]
     Route: 048
     Dates: start: 20021122
  9. CELLCEPT [Concomitant]
     Route: 048
     Dates: start: 20021122, end: 20021211

REACTIONS (3)
  - ANTI-ERYTHROPOIETIN ANTIBODY POSITIVE [None]
  - APLASIA PURE RED CELL [None]
  - THERAPEUTIC RESPONSE DECREASED [None]
